FAERS Safety Report 11761274 (Version 1)
Quarter: 2015Q4

REPORT INFORMATION
  Report Type: Spontaneous
  Country: US (occurrence: US)
  Receive Date: 20151120
  Receipt Date: 20151120
  Transmission Date: 20160304
  Serious: Yes (Other)
  Sender: FDA-Public Use
  Company Number: US-TEVA-609977USA

PATIENT
  Age: 62 Year
  Sex: Female
  Weight: 66.28 kg

DRUGS (2)
  1. SYNRIBO [Suspect]
     Active Substance: OMACETAXINE MEPESUCCINATE
     Indication: CHRONIC MYELOID LEUKAEMIA
     Dosage: 2 MILLIGRAM DAILY; HOME ADMINISTRATION
     Route: 058
     Dates: start: 20150119
  2. FERROUS SULFATE [Concomitant]
     Active Substance: FERROUS SULFATE\FERROUS SULFATE, DRIED

REACTIONS (1)
  - Haemoglobin decreased [Unknown]

NARRATIVE: CASE EVENT DATE: 20151113
